FAERS Safety Report 9382775 (Version 2)
Quarter: 2013Q3

REPORT INFORMATION
  Report Type: Spontaneous
  Country: BR (occurrence: BR)
  Receive Date: 20130703
  Receipt Date: 20130801
  Transmission Date: 20140515
  Serious: Yes (Other)
  Sender: FDA-Public Use
  Company Number: BR-PFIZER INC-2013197718

PATIENT
  Age: 78 Year
  Sex: Female
  Weight: 67 kg

DRUGS (2)
  1. FRONTAL [Suspect]
     Indication: INSOMNIA
     Dosage: STRENGTH 0.25MG, AS NEEDED
     Route: 048
     Dates: start: 1998
  2. TIMOLOL MALEATE [Suspect]
     Indication: GLAUCOMA
     Dosage: UNK

REACTIONS (9)
  - Glaucoma [Not Recovered/Not Resolved]
  - Eyelid ptosis [Unknown]
  - Feeling abnormal [Unknown]
  - Confusional state [Unknown]
  - Dizziness [Unknown]
  - Sleep disorder [Unknown]
  - Gastric disorder [Unknown]
  - Throat irritation [Unknown]
  - Off label use [Unknown]
